FAERS Safety Report 6792130-4 (Version None)
Quarter: 2010Q2

REPORT INFORMATION
  Report Type: 
  Country: None (occurrence: None)
  Receive Date: 20100624
  Receipt Date: 20080722
  Transmission Date: 20101027
  Serious: No
  Sender: FDA-Public Use
  Company Number: US-PFIZER INC-2008060975

PATIENT
  Sex: Female
  Weight: 85 kg

DRUGS (2)
  1. DEPO-PROVERA SUSPENSION/INJ [Suspect]
     Indication: ABDOMINAL PAIN UPPER
     Dates: start: 20080623
  2. DEPO-PROVERA SUSPENSION/INJ [Suspect]
     Indication: OFF LABEL USE

REACTIONS (3)
  - HEADACHE [None]
  - MENORRHAGIA [None]
  - METRORRHAGIA [None]
